FAERS Safety Report 15686922 (Version 4)
Quarter: 2019Q2

REPORT INFORMATION
  Report Type: Spontaneous
  Country: US (occurrence: US)
  Receive Date: 20181204
  Receipt Date: 20190627
  Transmission Date: 20190711
  Serious: No
  Sender: FDA-Public Use
  Company Number: US-ACTELION-A-NJ2018-182554

PATIENT
  Age: 61 Year
  Sex: Male

DRUGS (1)
  1. OPSUMIT [Suspect]
     Active Substance: MACITENTAN
     Indication: PULMONARY ARTERIAL HYPERTENSION
     Dosage: 10 MG, QD
     Route: 048
     Dates: start: 20180305

REACTIONS (5)
  - Vascular occlusion [Unknown]
  - Nausea [Unknown]
  - Unevaluable event [Unknown]
  - Seasonal allergy [Unknown]
  - Anxiety [Unknown]

NARRATIVE: CASE EVENT DATE: 201812
